FAERS Safety Report 8369121-5 (Version None)
Quarter: 2012Q2

REPORT INFORMATION
  Report Type: 
  Country: None (occurrence: None)
  Receive Date: 20120518
  Receipt Date: 20120508
  Transmission Date: 20120825
  Serious: Yes (Hospitalization, Disabling)
  Sender: FDA-Public Use
  Company Number: DK-JNJFOC-20100900548

PATIENT
  Sex: Female

DRUGS (4)
  1. REMICADE [Suspect]
     Route: 042
     Dates: start: 20100629
  2. REMICADE [Suspect]
     Indication: CROHN'S DISEASE
     Route: 042
     Dates: start: 20100531
  3. REMICADE [Suspect]
     Route: 042
     Dates: end: 20100729
  4. REMICADE [Suspect]
     Route: 042
     Dates: start: 20100519

REACTIONS (4)
  - FOLLICULITIS [None]
  - ALOPECIA [None]
  - MENTAL DISORDER [None]
  - URTICARIA [None]
